FAERS Safety Report 14363891 (Version 1)
Quarter: 2018Q1

REPORT INFORMATION
  Report Type: Spontaneous
  Country: US (occurrence: US)
  Receive Date: 20180108
  Receipt Date: 20180108
  Transmission Date: 20180509
  Serious: Yes (Hospitalization)
  Sender: FDA-Public Use
  Company Number: US-PFIZER INC-2018000177

PATIENT
  Age: 85 Year
  Sex: Male

DRUGS (1)
  1. PIROXICAM. [Suspect]
     Active Substance: PIROXICAM
     Indication: ARTHRITIS
     Dosage: 20 MG, DAILY

REACTIONS (3)
  - Hyperkalaemia [Recovered/Resolved]
  - Acidosis hyperchloraemic [Unknown]
  - Urine potassium decreased [Unknown]
